FAERS Safety Report 7223119-9 (Version None)
Quarter: 2011Q1

REPORT INFORMATION
  Report Type: 
  Country: None (occurrence: None)
  Receive Date: 20110112
  Receipt Date: 20100125
  Transmission Date: 20110831
  Serious: No
  Sender: FDA-Public Use
  Company Number: US-ALLERGAN-1000910US

PATIENT
  Sex: Female

DRUGS (7)
  1. CARTIA XT [Concomitant]
  2. TRAVATAN [Concomitant]
  3. RESTASIS [Suspect]
     Indication: DRY EYE
     Dosage: UNK
     Route: 047
  4. BIO TEARS [Concomitant]
  5. VITAMIN TAB [Concomitant]
  6. ASPIRIN [Concomitant]
  7. COSOPT [Concomitant]

REACTIONS (2)
  - EYE IRRITATION [None]
  - PHOTOPHOBIA [None]
